FAERS Safety Report 16095906 (Version 1)
Quarter: 2019Q1

REPORT INFORMATION
  Report Type: Spontaneous
  Country: ES (occurrence: ES)
  Receive Date: 20190320
  Receipt Date: 20190320
  Transmission Date: 20190418
  Serious: Yes (Life-Threatening, Hospitalization)
  Sender: FDA-Public Use
  Company Number: ES-TEVA-2019-ES-1024730

PATIENT
  Age: 38 Year
  Sex: Female

DRUGS (2)
  1. ANDROCUR [Concomitant]
     Active Substance: CYPROTERONE ACETATE
     Indication: POLYCYSTIC OVARIES
     Dosage: 2 TABLETS EVERY 24H
     Dates: start: 20180110
  2. FILGRASTIM (7089A) [Suspect]
     Active Substance: FILGRASTIM
     Dates: start: 20180526, end: 20180530

REACTIONS (7)
  - Haematuria [Recovering/Resolving]
  - Rhabdomyolysis [Recovering/Resolving]
  - Status epilepticus [Recovering/Resolving]
  - Encephalopathy [Recovering/Resolving]
  - Metabolic acidosis [Recovering/Resolving]
  - Proteinuria [Recovering/Resolving]
  - Dyskinesia [Recovering/Resolving]

NARRATIVE: CASE EVENT DATE: 20180530
